FAERS Safety Report 7757841-2 (Version None)
Quarter: 2011Q3

REPORT INFORMATION
  Report Type: 
  Country: None (occurrence: None)
  Receive Date: 20110918
  Receipt Date: 20110826
  Transmission Date: 20111222
  Serious: Yes (Hospitalization)
  Sender: FDA-Public Use
  Company Number: PHHO2010RO13517

PATIENT
  Sex: Female
  Weight: 18 kg

DRUGS (11)
  1. BLINDED NO TREATMENT RECEIVED [Suspect]
     Indication: CYSTIC FIBROSIS
     Dosage: DOUBLE BLINDED
     Dates: start: 20101008
  2. BLINDED PLACEBO [Suspect]
     Indication: CYSTIC FIBROSIS
     Dosage: DOUBLE BLINDED
     Dates: start: 20101008
  3. PULMOZYME [Concomitant]
     Dosage: 25 MG, UNK
     Dates: start: 20060603
  4. TOBRAMYCIN [Suspect]
     Indication: CYSTIC FIBROSIS
     Dosage: DOUBLE BLINDED
     Dates: start: 20101008
  5. ALBUTEROL [Concomitant]
     Indication: BRONCHIAL DISORDER
     Dosage: UNK
  6. PULMOZYME [Concomitant]
     Dosage: UNK
  7. AZITHROMYCIN [Concomitant]
     Dosage: UNK
  8. VENTOLIN HFA [Concomitant]
     Dosage: 2.5 MG, BID
     Dates: start: 20100129
  9. CREON [Concomitant]
     Dosage: 7 CAPS X 10000
     Dates: start: 20021201
  10. ACETYLCYSTEINE [Concomitant]
     Dosage: UNK
  11. FLUIMUCIL [Concomitant]
     Dosage: 1 VIAL BID
     Dates: start: 20090603

REACTIONS (11)
  - PYREXIA [None]
  - PNEUMONIA [None]
  - INCREASED UPPER AIRWAY SECRETION [None]
  - DISEASE PROGRESSION [None]
  - COUGH [None]
  - LUNG INFECTION [None]
  - PULMONARY FUNCTION TEST DECREASED [None]
  - BLOOD FIBRINOGEN INCREASED [None]
  - PSEUDOMONAS INFECTION [None]
  - LEUKOCYTOSIS [None]
  - RED BLOOD CELL SEDIMENTATION RATE INCREASED [None]
